FAERS Safety Report 8285762 (Version 2)
Quarter: 2013Q1

REPORT INFORMATION
  Report Type: Report from Study
  Country: CN (occurrence: CN)
  Receive Date: 20111213
  Receipt Date: 20130118
  Transmission Date: 20140127
  Serious: Yes (Hospitalization)
  Sender: FDA-Public Use
  Company Number: CN-ASTELLAS-2011JP008904

PATIENT
  Age: 26 Year
  Sex: Male

DRUGS (5)
  1. TACROLIMUS [Suspect]
     Indication: MYASTHENIA GRAVIS
     Dosage: 3 MG, UNKNOWN/D
     Route: 048
     Dates: start: 20110812, end: 20111117
  2. SUCRALFATE [Concomitant]
     Dosage: 0.5 G, BID
     Route: 048
     Dates: start: 20101209
  3. POTASSIUM CHLORIDE [Concomitant]
     Indication: MINERAL SUPPLEMENTATION
     Dosage: 1.0 G, BID
     Route: 048
     Dates: start: 20110920
  4. CALTRATE [Concomitant]
     Indication: MINERAL SUPPLEMENTATION
     Dosage: 1 DF, UID/QD
     Route: 048
     Dates: start: 20100705
  5. TERBUTALINE SULFATE [Concomitant]
     Indication: ASTHENIA
     Dosage: 1.25 MG, TID
     Route: 048
     Dates: start: 20110919

REACTIONS (1)
  - Myasthenia gravis [Recovering/Resolving]
